FAERS Safety Report 4431749-2 (Version None)
Quarter: 2004Q3

REPORT INFORMATION
  Report Type: 
  Country: None (occurrence: None)
  Receive Date: 20040825
  Receipt Date: 20040813
  Transmission Date: 20050211
  Serious: Yes (Death)
  Sender: FDA-Public Use
  Company Number: JP-JNJFOC-20040607182

PATIENT
  Sex: Male

DRUGS (15)
  1. LEUSTATIN [Suspect]
     Route: 042
     Dates: start: 20040607, end: 20040611
  2. RITUXIMAB [Suspect]
     Route: 041
  3. CYCLOPHOSPHAMIDE [Suspect]
     Route: 041
  4. DOXORUBICIN HCL [Suspect]
     Route: 041
  5. VINCRISTINE SULFATE [Suspect]
  6. CEFEPIME DIHYDROCHLORIDE [Concomitant]
     Indication: INFECTION
     Route: 041
  7. FAMOTIDINE [Concomitant]
     Route: 041
  8. METHOTREXATE [Concomitant]
  9. CYTARABINE [Concomitant]
  10. PREDNISOLONE SODIUM SUCCINATE INJ [Concomitant]
  11. FILGRASTIM [Concomitant]
  12. PAZUFLOXACIN MESILATE [Concomitant]
     Indication: INFECTION
  13. VANCOMYCIN HCL [Concomitant]
     Indication: INFECTION
     Route: 049
  14. CONCENTRATED HUMAN RED BLOOD CELLS [Concomitant]
     Route: 041
  15. CONCENTRATED HUMAN BLOOD PLATELET [Concomitant]
     Route: 041

REACTIONS (12)
  - ALANINE AMINOTRANSFERASE INCREASED [None]
  - ASPARTATE AMINOTRANSFERASE INCREASED [None]
  - BACTERIA STOOL IDENTIFIED [None]
  - CLOSTRIDIUM COLITIS [None]
  - HEPATOCELLULAR DAMAGE [None]
  - INFECTION [None]
  - MANTLE CELL LYMPHOMA REFRACTORY [None]
  - MUSCLE DISORDER [None]
  - NEPHROPATHY [None]
  - PANCYTOPENIA [None]
  - SENSORY DISTURBANCE [None]
  - THERAPY NON-RESPONDER [None]
